FAERS Safety Report 12937358 (Version 2)
Quarter: 2016Q4

REPORT INFORMATION
  Report Type: Spontaneous
  Country: US (occurrence: US)
  Receive Date: 20161114
  Receipt Date: 20161114
  Transmission Date: 20170207
  Serious: No
  Sender: FDA-Public Use
  Company Number: US-PFIZER INC-3167377

PATIENT
  Age: 36 Year
  Sex: Male
  Weight: 79 kg

DRUGS (10)
  1. PHYSOSTIGMINE SALICYLATE. [Suspect]
     Active Substance: PHYSOSTIGMINE SALICYLATE
     Dosage: 2 MG, UNK
     Route: 041
     Dates: start: 20160207
  2. SODIUM CHLORIDE. [Concomitant]
     Active Substance: SODIUM CHLORIDE
     Dosage: 1000 ML, UNK
     Route: 040
     Dates: start: 20160207
  3. LORAZEPAM. [Suspect]
     Active Substance: LORAZEPAM
     Indication: AGITATION
     Dosage: 1 MG, UNK
     Route: 042
     Dates: start: 20160207
  4. LORAZEPAM. [Suspect]
     Active Substance: LORAZEPAM
     Dosage: 1 MG, UNK
     Route: 042
     Dates: start: 20160207
  5. SODIUM CHLORIDE. [Concomitant]
     Active Substance: SODIUM CHLORIDE
     Dosage: 1000 ML, UNK
     Route: 040
     Dates: start: 20160207
  6. PHYSOSTIGMINE SALICYLATE. [Suspect]
     Active Substance: PHYSOSTIGMINE SALICYLATE
     Indication: AGITATION
     Dosage: 0.5 MG, UNK
     Route: 041
     Dates: start: 20160207
  7. DIAZEPAM. [Suspect]
     Active Substance: DIAZEPAM
     Indication: AGITATION
     Dosage: 20 MG, UNK
     Route: 041
     Dates: start: 20160207
  8. LORAZEPAM. [Suspect]
     Active Substance: LORAZEPAM
     Dosage: 1 MG, UNK
     Route: 042
     Dates: start: 20160207
  9. SODIUM CHLORIDE. [Concomitant]
     Active Substance: SODIUM CHLORIDE
     Indication: PRODUCT USED FOR UNKNOWN INDICATION
     Dosage: 1000 ML, UNK
     Route: 040
     Dates: start: 20160207
  10. LORAZEPAM. [Suspect]
     Active Substance: LORAZEPAM
     Dosage: 1 MG, UNK
     Route: 042
     Dates: start: 20160207

REACTIONS (3)
  - Product quality issue [Recovered/Resolved]
  - Drug ineffective [Recovered/Resolved]
  - Poor quality drug administered [Recovered/Resolved]

NARRATIVE: CASE EVENT DATE: 20160207
